FAERS Safety Report 10990452 (Version 2)
Quarter: 2015Q2

REPORT INFORMATION
  Report Type: Spontaneous
  Country: US (occurrence: US)
  Receive Date: 20150406
  Receipt Date: 20150507
  Transmission Date: 20150821
  Serious: Yes (Other)
  Sender: FDA-Public Use
  Company Number: US-PFIZER INC-2015111275

PATIENT
  Age: 72 Year
  Sex: Male
  Weight: 62 kg

DRUGS (18)
  1. LASIX [Concomitant]
     Active Substance: FUROSEMIDE
     Dosage: UNK
  2. NEXIUM [Concomitant]
     Active Substance: ESOMEPRAZOLE MAGNESIUM
     Dosage: UNK
  3. SUTENT [Suspect]
     Active Substance: SUNITINIB MALATE
     Indication: METASTATIC RENAL CELL CARCINOMA
     Dosage: 50 MG, 28 DAYS ON, 14 DAY OFF
     Dates: start: 20150112
  4. CLONAPIN [Concomitant]
     Active Substance: CLONAZEPAM
     Dosage: UNK
  5. COENZYME Q10 [Concomitant]
     Active Substance: UBIDECARENONE
     Dosage: UNK
  6. NYSTATIN. [Concomitant]
     Active Substance: NYSTATIN
     Dosage: UNK
  7. ZOCOR [Concomitant]
     Active Substance: SIMVASTATIN
     Dosage: UNK
  8. AQUAPHOR [Concomitant]
     Active Substance: PETROLATUM
     Dosage: UNK
  9. POTASSIUM [Concomitant]
     Active Substance: POTASSIUM
     Dosage: UNK
  10. PROMETHAZINE [Concomitant]
     Active Substance: PROMETHAZINE\PROMETHAZINE HYDROCHLORIDE
     Dosage: UNK, AS NEEDED
  11. PROLIA [Concomitant]
     Active Substance: DENOSUMAB
     Dosage: MONTHLY
  12. COREG [Concomitant]
     Active Substance: CARVEDILOL
     Dosage: UNK
  13. ALDACTONE [Concomitant]
     Active Substance: SPIRONOLACTONE
     Dosage: UNK
  14. MEGA RED [Concomitant]
     Dosage: UNK
  15. VITAMIN D [Concomitant]
     Active Substance: CHOLECALCIFEROL
     Dosage: UNK
  16. HYDROCODONE BITARTRATE AND ACETAMINOPHEN [Concomitant]
     Active Substance: ACETAMINOPHEN\HYDROCODONE BITARTRATE
     Dosage: UNK
  17. HYDRALAZINE [Concomitant]
     Active Substance: HYDRALAZINE HYDROCHLORIDE
     Dosage: UNK
  18. MULTIVITAMINS [Concomitant]
     Active Substance: VITAMINS
     Dosage: UNK

REACTIONS (2)
  - Second primary malignancy [Unknown]
  - Basal cell carcinoma [Unknown]
